FAERS Safety Report 20257882 (Version 1)
Quarter: 2021Q4

REPORT INFORMATION
  Report Type: Spontaneous
  Country: US (occurrence: None)
  Receive Date: 20211229
  Receipt Date: 20211229
  Transmission Date: 20220303
  Serious: No
  Sender: FDA-Public Use
  Company Number: None

PATIENT
  Sex: Male

DRUGS (3)
  1. CYCLOPHOSPHAMIDE [Suspect]
     Active Substance: CYCLOPHOSPHAMIDE
     Indication: Plasma cell myeloma
     Dosage: OTHER FREQUENCY : ONCE A WEEK;?
     Route: 048
     Dates: start: 20211124
  2. VARUBI [Concomitant]
     Active Substance: ROLAPITANT
     Dates: start: 20211124
  3. XPOVIO [Concomitant]
     Active Substance: SELINEXOR
     Dates: start: 20211124

REACTIONS (2)
  - Diarrhoea [None]
  - Product dose omission issue [None]
